FAERS Safety Report 9916916 (Version 1)
Quarter: 2014Q1

REPORT INFORMATION
  Report Type: Report from Study
  Country: US (occurrence: US)
  Receive Date: 20140221
  Receipt Date: 20140221
  Transmission Date: 20141002
  Serious: No
  Sender: FDA-Public Use
  Company Number: US-ALEXION-A201400474

PATIENT
  Age: 39 Year
  Sex: Female

DRUGS (3)
  1. SOLIRIS [Suspect]
     Indication: PAROXYSMAL NOCTURNAL HAEMOGLOBINURIA
     Dosage: 900 MG BI-WEEKLY
     Route: 042
     Dates: start: 20100907
  2. FOLIC ACID [Concomitant]
     Dosage: UNK, QD
     Dates: start: 20000101
  3. COUMADIN                           /00014802/ [Concomitant]
     Indication: ANTICOAGULANT THERAPY
     Dosage: UNK
     Dates: start: 20110718

REACTIONS (1)
  - Platelet count decreased [Not Recovered/Not Resolved]
